FAERS Safety Report 25804206 (Version 1)
Quarter: 2025Q3

REPORT INFORMATION
  Report Type: Report from Study
  Country: JP (occurrence: JP)
  Receive Date: 20250915
  Receipt Date: 20250915
  Transmission Date: 20251020
  Serious: Yes (Other)
  Sender: ROCHE
  Company Number: JP-CHUGAI-2024023141

PATIENT
  Age: 63 Year
  Sex: Female
  Weight: 53.8 kg

DRUGS (4)
  1. ACTEMRA [Suspect]
     Active Substance: TOCILIZUMAB
     Indication: Cytokine release syndrome
     Route: 065
     Dates: start: 202311
  2. KYMRIAH [Suspect]
     Active Substance: TISAGENLECLEUCEL
     Indication: Follicle centre lymphoma, follicular grade I, II, III
     Route: 042
     Dates: start: 20231030, end: 20231030
  3. CYCLOPHOSPHAMIDE [Concomitant]
     Active Substance: CYCLOPHOSPHAMIDE
     Indication: Cytokine release syndrome
     Route: 065
     Dates: start: 20231025
  4. FLUDARABINE PHOSPHATE [Concomitant]
     Active Substance: FLUDARABINE PHOSPHATE
     Indication: Lymphodepletion
     Route: 065
     Dates: start: 20231025

REACTIONS (3)
  - Lymphocyte count decreased [Unknown]
  - White blood cell count decreased [Unknown]
  - Neutrophil count decreased [Unknown]
